FAERS Safety Report 13654692 (Version 1)
Quarter: 2017Q2

REPORT INFORMATION
  Report Type: Spontaneous
  Country: US (occurrence: US)
  Receive Date: 20170614
  Receipt Date: 20170614
  Transmission Date: 20170830
  Serious: Yes (Other)
  Sender: FDA-Public Use
  Company Number: None

PATIENT
  Age: 81 Year
  Sex: Female

DRUGS (1)
  1. INFLIXIMAB [Suspect]
     Active Substance: INFLIXIMAB
     Indication: RHEUMATOID ARTHRITIS
     Dosage: 500 MG INTRAVENOUS EVERY SIX WEEKS?
     Route: 042
     Dates: start: 20140722, end: 20170613

REACTIONS (14)
  - Tachypnoea [None]
  - Left ventricular hypertrophy [None]
  - Asthma [None]
  - Ventricular extrasystoles [None]
  - QRS axis abnormal [None]
  - Use of accessory respiratory muscles [None]
  - Myocardial infarction [None]
  - Anaphylactic reaction [None]
  - Respiratory distress [None]
  - Dyspnoea [None]
  - Bradycardia [None]
  - Infusion related reaction [None]
  - Atrioventricular block second degree [None]
  - Nodal rhythm [None]

NARRATIVE: CASE EVENT DATE: 20170613
